FAERS Safety Report 8477290-1 (Version None)
Quarter: 2012Q2

REPORT INFORMATION
  Report Type: 
  Country: None (occurrence: None)
  Receive Date: 20120622
  Receipt Date: 20120615
  Transmission Date: 20120825
  Serious: Yes (Other)
  Sender: FDA-Public Use
  Company Number: DSA_57976_2012

PATIENT

DRUGS (5)
  1. CISPLATIN [Suspect]
     Indication: OESOPHAGEAL CARCINOMA
     Dosage: (75 MG/M2)
  2. ALL OTHER THERAPEUTIC PRODUCTS (ALL OTHER THERAPEUTIC PRODUCTS) [Suspect]
     Indication: OESOPHAGEAL CARCINOMA
     Dosage: (WEEKLY INTRATUMOR)
  3. FLUOROURACIL [Suspect]
     Indication: OESOPHAGEAL CARCINOMA
     Dosage: (1000 MG/M2 INTRAVENOUS (NOT OTHERWISE SPECIFIED)
     Route: 042
  4. THERAPEUTIC RADIOPHARMACEUTICALS [Suspect]
     Indication: OESOPHAGEAL CARCINOMA
     Dosage: (DAILY)
  5. CIPROFLOXACIN [Concomitant]

REACTIONS (1)
  - DEEP VEIN THROMBOSIS [None]
